FAERS Safety Report 7268125-3 (Version None)
Quarter: 2011Q1

REPORT INFORMATION
  Report Type: 
  Country: None (occurrence: None)
  Receive Date: 20110201
  Receipt Date: 20110126
  Transmission Date: 20110831
  Serious: No
  Sender: FDA-Public Use
  Company Number: US-PFIZER INC-2011019023

PATIENT
  Sex: Female
  Weight: 100.68 kg

DRUGS (2)
  1. PRISTIQ [Suspect]
     Indication: DEPRESSION
     Dosage: 50 MG, DAILY
     Route: 048
     Dates: start: 20101201
  2. MULTI-VITAMINS [Concomitant]
     Dosage: UNK

REACTIONS (2)
  - RESTLESS LEGS SYNDROME [None]
  - DECREASED APPETITE [None]
